FAERS Safety Report 13445921 (Version 1)
Quarter: 2017Q2

REPORT INFORMATION
  Report Type: Spontaneous
  Country: US (occurrence: US)
  Receive Date: 20170417
  Receipt Date: 20170417
  Transmission Date: 20170830
  Serious: No
  Sender: FDA-Public Use
  Company Number: US-BION-005943

PATIENT
  Sex: Male

DRUGS (1)
  1. NAPROXEN SODIUM 220MG SOFTGEL 40 CT BIONPHARMA [Suspect]
     Active Substance: NAPROXEN SODIUM
     Indication: HEADACHE
     Dosage: 2 SOFTGELS,ONCE
     Route: 048
     Dates: start: 20170122, end: 20170122

REACTIONS (4)
  - Incorrect product storage [None]
  - Oral discomfort [Recovered/Resolved]
  - Poor quality drug administered [Not Recovered/Not Resolved]
  - Product physical issue [Unknown]

NARRATIVE: CASE EVENT DATE: 20170122
